FAERS Safety Report 8378792-9 (Version None)
Quarter: 2012Q2

REPORT INFORMATION
  Report Type: 
  Country: None (occurrence: None)
  Receive Date: 20120523
  Receipt Date: 20120512
  Transmission Date: 20120825
  Serious: Yes (Other)
  Sender: FDA-Public Use
  Company Number: AU-BRISTOL-MYERS SQUIBB COMPANY-16590085

PATIENT
  Sex: Female
  Weight: 72 kg

DRUGS (11)
  1. CELEBREX [Concomitant]
  2. METHOTREXATE [Concomitant]
  3. ZOCOR [Concomitant]
  4. EFFEXOR [Concomitant]
     Dosage: EFEXOR-XR
  5. ACETAMINOPHEN [Concomitant]
  6. RABEPRAZOLE SODIUM [Concomitant]
  7. FOLIC ACID [Concomitant]
  8. ORENCIA [Suspect]
     Indication: RHEUMATOID ARTHRITIS
     Route: 042
     Dates: start: 20110903
  9. ARAVA [Concomitant]
  10. SULFASALAZINE [Concomitant]
  11. COENZYME Q10 [Concomitant]

REACTIONS (2)
  - CORONARY ARTERY DISEASE [None]
  - ARRHYTHMIA [None]
